FAERS Safety Report 4560008-2 (Version None)
Quarter: 2005Q1

REPORT INFORMATION
  Report Type: 
  Country: None (occurrence: None)
  Receive Date: 20050124
  Receipt Date: 20050107
  Transmission Date: 20050727
  Serious: Yes (Other)
  Sender: FDA-Public Use
  Company Number: 2005007850

PATIENT
  Age: 33 Year
  Sex: Female
  Weight: 69.8539 kg

DRUGS (6)
  1. COOL MINT LISTERINE (MENTHOL, METHYL SALICYLATE, EUCALYPTOL, THYMOL) [Suspect]
     Indication: DENTAL DISORDER PROPHYLAXIS
     Dosage: ORAL TOPICAL
     Route: 048
  2. HYDROCHLOROTHIAZIDE [Concomitant]
  3. LABETALOL HCL [Concomitant]
  4. NIFEDIPINE [Concomitant]
  5. POTASSIUM (POTASSIUM) [Concomitant]
  6. BENAZEPRIL HCL [Concomitant]

REACTIONS (1)
  - NEOPLASM MALIGNANT [None]
